FAERS Safety Report 23870222 (Version 2)
Quarter: 2024Q2

REPORT INFORMATION
  Report Type: Spontaneous
  Country: US (occurrence: US)
  Receive Date: 20240517
  Receipt Date: 20240529
  Transmission Date: 20240716
  Serious: Yes (Other)
  Sender: FDA-Public Use
  Company Number: US-Central Admixture Pharmacy Services, Inc.-2157143

PATIENT

DRUGS (1)
  1. DEL NIDO PLASMALYTE-A [Suspect]
     Active Substance: LIDOCAINE HYDROCHLORIDE\MAGNESIUM CHLORIDE\MAGNESIUM SULFATE HEPTAHYDRATE\MANNITOL\POTASSIUM CHLORID
     Indication: Cardiac operation
     Route: 016

REACTIONS (1)
  - Drug ineffective [Unknown]
